FAERS Safety Report 4879977-6 (Version None)
Quarter: 2006Q1

REPORT INFORMATION
  Report Type: 
  Country: None (occurrence: None)
  Receive Date: 20060113
  Receipt Date: 20051005
  Transmission Date: 20060701
  Serious: Yes (Hospitalization)
  Sender: FDA-Public Use
  Company Number: US-MERCK-0510USA04685

PATIENT
  Age: 47 Year
  Sex: Female
  Weight: 105 kg

DRUGS (4)
  1. VIOXX [Suspect]
     Indication: LIGAMENT INJURY
     Route: 048
     Dates: start: 20010101
  2. DIABETA [Concomitant]
     Route: 065
  3. NEXIUM [Concomitant]
     Route: 065
  4. DIOVAN [Concomitant]
     Route: 065

REACTIONS (5)
  - CARDIAC VALVE DISEASE [None]
  - COUGH [None]
  - HAEMORRHAGE [None]
  - JOINT INJURY [None]
  - MUSCULOSKELETAL DISCOMFORT [None]
